FAERS Safety Report 4684274-8 (Version None)
Quarter: 2005Q2

REPORT INFORMATION
  Report Type: 
  Country: None (occurrence: None)
  Receive Date: 20050531
  Receipt Date: 20041005
  Transmission Date: 20051028
  Serious: Yes (Death)
  Sender: FDA-Public Use
  Company Number: 200417604US

PATIENT
  Age: 60 Year
  Sex: Female

DRUGS (1)
  1. LOVENOX [Suspect]
     Indication: PULMONARY EMBOLISM
     Dosage: 82 MG BID INJ
     Dates: start: 20040925

REACTIONS (1)
  - RETROPERITONEAL HAEMORRHAGE [None]
